FAERS Safety Report 22095232 (Version 3)
Quarter: 2023Q1

REPORT INFORMATION
  Report Type: Report from Study
  Country: JP (occurrence: JP)
  Receive Date: 20230314
  Receipt Date: 20230320
  Transmission Date: 20230418
  Serious: Yes (Hospitalization)
  Sender: FDA-Public Use
  Company Number: JP-CHUGAI-2023007108AA

PATIENT
  Age: 73 Year
  Sex: Female
  Weight: 39.9 kg

DRUGS (18)
  1. ATEZOLIZUMAB [Suspect]
     Active Substance: ATEZOLIZUMAB
     Indication: Gallbladder cancer
     Route: 041
     Dates: start: 20210902, end: 20230209
  2. TIMOLOL MALEATE\TRAVOPROST [Concomitant]
     Active Substance: TIMOLOL MALEATE\TRAVOPROST
     Indication: Glaucoma
     Dosage: UNK UNK, QD
     Route: 047
     Dates: start: 20220805
  3. FELBINAC [Concomitant]
     Active Substance: FELBINAC
     Indication: Pain in extremity
     Route: 061
     Dates: start: 20220805
  4. FLUTICASONE FUROATE [Concomitant]
     Active Substance: FLUTICASONE FUROATE
     Indication: Chronic sinusitis
     Dosage: 2SPRAY, QD
     Route: 045
     Dates: start: 20220630
  5. LOXOPROFEN SODIUM [Concomitant]
     Active Substance: LOXOPROFEN SODIUM
     Indication: Back pain
     Route: 061
  6. FERROUS CITRATE [Concomitant]
     Active Substance: FERROUS CITRATE
     Indication: Mineral supplementation
     Dosage: 50 MILLIGRAM, BID
     Route: 048
     Dates: start: 20230209
  7. PIRENOXINE [Concomitant]
     Active Substance: PIRENOXINE
     Indication: Cataract
     Dosage: UNK UNK, TID
     Route: 047
     Dates: start: 20220315
  8. EPISIL [Concomitant]
     Indication: Stomatitis
     Dosage: UNK UNK, PRN
     Route: 002
     Dates: start: 20220603
  9. BIO-THREE [Concomitant]
     Active Substance: HERBALS
     Indication: Prophylaxis
     Dosage: 1 DOSAGE FORM, TID
     Route: 048
  10. CALONAL [Concomitant]
     Active Substance: ACETAMINOPHEN
     Indication: Back pain
     Dosage: 500 MILLIGRAM, TID
     Route: 048
  11. BRIMONIDINE TARTRATE [Concomitant]
     Active Substance: BRIMONIDINE TARTRATE
     Indication: Glaucoma
     Dosage: UNK UNK, TID
     Route: 047
     Dates: start: 20220315
  12. CYANOCOBALAMIN [Concomitant]
     Active Substance: CYANOCOBALAMIN
     Indication: Accommodation disorder
     Dosage: UNK UNK, PRN
     Route: 047
     Dates: start: 20220608
  13. HYDROCORTISONE [Concomitant]
     Active Substance: HYDROCORTISONE
     Indication: Thyroiditis
     Dosage: 5 MILLIGRAM, QD
     Route: 048
     Dates: start: 20220422
  14. HYDROCORTISONE [Concomitant]
     Active Substance: HYDROCORTISONE
     Dosage: 10 MILLIGRAM, QD
     Route: 048
     Dates: start: 20220422
  15. LEVOTHYROXINE SODIUM [Concomitant]
     Active Substance: LEVOTHYROXINE SODIUM
     Indication: Thyroiditis
     Dosage: 0.5 DOSAGE FORM, QD
     Route: 048
     Dates: start: 20220511
  16. ALENDRONATE [Concomitant]
     Active Substance: ALENDRONATE SODIUM
     Indication: Osteoporosis
     Dosage: 35 MILLIGRAM, ONCE/WEEK
     Route: 048
  17. ELDECALCITOL [Concomitant]
     Active Substance: ELDECALCITOL
     Indication: Osteoporosis
     Dosage: 0.75 MICROGRAM, QD
     Route: 048
  18. GLYCOSAMINOGLYCANS [Concomitant]
     Active Substance: GLYCOSAMINOGLYCANS
     Indication: Dry skin prophylaxis
     Dosage: UNK UNK, PRN
     Route: 061
     Dates: start: 20221007

REACTIONS (2)
  - Blood alkaline phosphatase increased [Not Recovered/Not Resolved]
  - Gamma-glutamyltransferase increased [Not Recovered/Not Resolved]

NARRATIVE: CASE EVENT DATE: 20230222
